FAERS Safety Report 7993942-1 (Version None)
Quarter: 2011Q4

REPORT INFORMATION
  Report Type: 
  Country: None (occurrence: None)
  Receive Date: 20111220
  Receipt Date: 20111212
  Transmission Date: 20120403
  Serious: Yes (Hospitalization)
  Sender: FDA-Public Use
  Company Number: US-AMGEN-USASP2011066148

PATIENT
  Age: 54 Year
  Sex: Male

DRUGS (1)
  1. ENBREL [Suspect]
     Indication: ANKYLOSING SPONDYLITIS
     Dosage: 50 MG, QWK
     Dates: start: 20100106, end: 20111119

REACTIONS (6)
  - CARPAL TUNNEL DECOMPRESSION [None]
  - OEDEMA PERIPHERAL [None]
  - ANKYLOSING SPONDYLITIS [None]
  - PAIN IN EXTREMITY [None]
  - TENDON SHEATH INCISION [None]
  - LOCALISED INFECTION [None]
